FAERS Safety Report 10794986 (Version 1)
Quarter: 2015Q1

REPORT INFORMATION
  Report Type: Spontaneous
  Country: US (occurrence: US)
  Receive Date: 20150214
  Receipt Date: 20150214
  Transmission Date: 20150721
  Serious: No
  Sender: FDA-Public Use
  Company Number: US-GLAXOSMITHKLINE-A1083390A

PATIENT

DRUGS (3)
  1. OMEPRAZOLE. [Concomitant]
     Active Substance: OMEPRAZOLE
  2. FLOVENT [Suspect]
     Active Substance: FLUTICASONE PROPIONATE
     Indication: ASTHMA
     Dosage: INH 110MCG
     Route: 055
     Dates: start: 201212, end: 201212
  3. ALBUTEROL. [Concomitant]
     Active Substance: ALBUTEROL

REACTIONS (10)
  - Nausea [Unknown]
  - Asthenia [Unknown]
  - Feeling abnormal [Unknown]
  - Drug effect delayed [Unknown]
  - Palpitations [Unknown]
  - Nervousness [Unknown]
  - Malaise [Recovered/Resolved]
  - Dizziness [Unknown]
  - Headache [Unknown]
  - Arrhythmia [Unknown]

NARRATIVE: CASE EVENT DATE: 201212
